FAERS Safety Report 20344798 (Version 1)
Quarter: 2022Q1

REPORT INFORMATION
  Report Type: Spontaneous
  Country: NL (occurrence: NL)
  Receive Date: 20220118
  Receipt Date: 20220118
  Transmission Date: 20220423
  Serious: Yes (Hospitalization)
  Sender: FDA-Public Use
  Company Number: NL-LRB-00733033

PATIENT
  Sex: Female
  Weight: 63 kg

DRUGS (1)
  1. ISOTRETINOIN [Suspect]
     Active Substance: ISOTRETINOIN
     Indication: Acne
     Dosage: 10 MILLIGRAM, DAILY, 1X PER DAY 1 PIECE
     Route: 065
     Dates: start: 201907

REACTIONS (1)
  - Intraductal proliferative breast lesion [Recovered/Resolved]
